FAERS Safety Report 7229848-5 (Version None)
Quarter: 2011Q1

REPORT INFORMATION
  Report Type: 
  Country: None (occurrence: None)
  Receive Date: 20110117
  Receipt Date: 20110105
  Transmission Date: 20110831
  Serious: Yes (Hospitalization)
  Sender: FDA-Public Use
  Company Number: PHHY2011US01155

PATIENT
  Sex: Male

DRUGS (1)
  1. WARFARIN [Suspect]
     Indication: ATRIAL FIBRILLATION

REACTIONS (12)
  - HYPOAESTHESIA [None]
  - HYPOAESTHESIA FACIAL [None]
  - IIIRD NERVE PARALYSIS [None]
  - PUPILS UNEQUAL [None]
  - CEREBRAL HAEMORRHAGE [None]
  - SOMNOLENCE [None]
  - EYE DISORDER [None]
  - PITUITARY TUMOUR BENIGN [None]
  - HEADACHE [None]
  - FACIAL PARESIS [None]
  - PITUITARY HAEMORRHAGE [None]
  - PSYCHOMOTOR HYPERACTIVITY [None]
